FAERS Safety Report 4499624-5 (Version None)
Quarter: 2004Q4

REPORT INFORMATION
  Report Type: 
  Country: None (occurrence: None)
  Receive Date: 20041110
  Receipt Date: 20041110
  Transmission Date: 20050328
  Serious: No
  Sender: FDA-Public Use
  Company Number: None

PATIENT
  Sex: Male
  Weight: 73.4827 kg

DRUGS (2)
  1. TOPAMAX [Suspect]
     Indication: NEUROPATHY PERIPHERAL
     Dosage: 1 THEN 2/DAY
     Dates: start: 20040722, end: 20040730
  2. PERCOSET PAIN RELIEVER [Concomitant]

REACTIONS (11)
  - ASTHENIA [None]
  - ASTIGMATISM [None]
  - CONDITION AGGRAVATED [None]
  - CONFUSIONAL STATE [None]
  - DYSARTHRIA [None]
  - EYE PAIN [None]
  - HALO VISION [None]
  - HEADACHE [None]
  - IMPAIRED DRIVING ABILITY [None]
  - MYOPIA [None]
  - VISION BLURRED [None]
